FAERS Safety Report 9274924 (Version 1)
Quarter: 2013Q1

REPORT INFORMATION
  Report Type: Spontaneous
  Country: US (occurrence: None)
  Receive Date: 20130219
  Receipt Date: 20130219
  Transmission Date: 20140127
  Serious: Yes (Other)
  Sender: FDA-Public Use
  Company Number: SYM-2013-00430

PATIENT
  Age: 26 Year
  Sex: Male

DRUGS (1)
  1. XENAZINE (TETRABENAZINE)(TABLETS)(TETRABENAZINE) [Suspect]
     Indication: HUNTINGTON^S DISEASE
     Dosage: 25 MG, 1 D, ORAL
     Route: 048
     Dates: start: 20121105

REACTIONS (1)
  - Weight decreased [None]
